FAERS Safety Report 5680772-9 (Version None)
Quarter: 2008Q1

REPORT INFORMATION
  Report Type: 
  Country: None (occurrence: None)
  Receive Date: 20080325
  Receipt Date: 20080310
  Transmission Date: 20080703
  Serious: Yes (Other)
  Sender: FDA-Public Use
  Company Number: 2008S1000085

PATIENT
  Age: 53 Year
  Sex: Male

DRUGS (5)
  1. SORIATANE [Suspect]
     Indication: DRUG USE FOR UNKNOWN INDICATION
     Dosage: PO
     Route: 048
     Dates: start: 20050101
  2. PROCRIT [Suspect]
     Indication: NEPHROGENIC ANAEMIA
     Dosage: 80000 IU; QW
     Dates: start: 20040901
  3. PROGRAF [Suspect]
     Indication: RENAL TRANSPLANT
     Dates: start: 20040101
  4. SULFAMETHOXAZOLE [Suspect]
     Indication: DRUG USE FOR UNKNOWN INDICATION
     Dates: start: 20071212, end: 20080112
  5. IMMUNOSUPPRESSIVE AGENTS [Concomitant]

REACTIONS (2)
  - ANAEMIA [None]
  - DRUG INEFFECTIVE [None]
